FAERS Safety Report 6316929-3 (Version None)
Quarter: 2009Q3

REPORT INFORMATION
  Report Type: 
  Country: None (occurrence: None)
  Receive Date: 20090820
  Receipt Date: 20090811
  Transmission Date: 20100115
  Serious: Yes (Death, Other)
  Sender: FDA-Public Use
  Company Number: JP-BAXTER-2009BH012907

PATIENT
  Age: 46 Year
  Sex: Male
  Weight: 54 kg

DRUGS (10)
  1. ENDOXAN BAXTER [Suspect]
     Indication: DRUG USE FOR UNKNOWN INDICATION
     Route: 065
  2. ETOPOSIDE [Suspect]
     Indication: DRUG USE FOR UNKNOWN INDICATION
     Route: 065
  3. DOXORUBICIN HCL [Suspect]
     Indication: DRUG USE FOR UNKNOWN INDICATION
     Route: 065
  4. PREDONINE [Suspect]
     Indication: DRUG USE FOR UNKNOWN INDICATION
     Route: 065
  5. ARABINOSIDE [Suspect]
     Indication: DRUG USE FOR UNKNOWN INDICATION
     Route: 065
     Dates: start: 20040301
  6. ARABINOSIDE [Suspect]
     Route: 065
     Dates: start: 20040401
  7. DEXAMETHASONE [Suspect]
     Indication: DRUG USE FOR UNKNOWN INDICATION
     Route: 065
     Dates: start: 20040301
  8. DEXAMETHASONE [Suspect]
     Route: 065
     Dates: start: 20040401
  9. RITUXIMAB [Suspect]
     Indication: DRUG USE FOR UNKNOWN INDICATION
     Route: 065
     Dates: start: 20040301
  10. RITUXIMAB [Suspect]
     Route: 065
     Dates: start: 20040401

REACTIONS (3)
  - FEBRILE NEUTROPENIA [None]
  - OBLITERATIVE BRONCHIOLITIS [None]
  - STEVENS-JOHNSON SYNDROME [None]
